FAERS Safety Report 10083754 (Version 1)
Quarter: 2014Q2

REPORT INFORMATION
  Report Type: Spontaneous
  Country: US (occurrence: None)
  Receive Date: 20140416
  Receipt Date: 20140416
  Transmission Date: 20141212
  Serious: Yes (Hospitalization)
  Sender: FDA-Public Use
  Company Number: None

PATIENT
  Age: 1 Year
  Sex: Female
  Weight: 8.08 kg

DRUGS (2)
  1. CARBOPLATIN [Suspect]
  2. THIOTEPA [Suspect]

REACTIONS (11)
  - Fluid overload [None]
  - Oedema [None]
  - Blood potassium decreased [None]
  - Tachypnoea [None]
  - Hypoxia [None]
  - Mental status changes [None]
  - Pulmonary oedema [None]
  - Hypernatraemia [None]
  - Face oedema [None]
  - Oedema peripheral [None]
  - Oedema peripheral [None]
